FAERS Safety Report 14725969 (Version 1)
Quarter: 2018Q2

REPORT INFORMATION
  Report Type: Spontaneous
  Country: PL (occurrence: PL)
  Receive Date: 20180406
  Receipt Date: 20180406
  Transmission Date: 20180711
  Serious: Yes (Other)
  Sender: FDA-Public Use
  Company Number: PL-MERCK KGAA-2045215

PATIENT
  Sex: Female

DRUGS (10)
  1. ACARD [Concomitant]
     Active Substance: ASPIRIN
  2. IODINE. [Concomitant]
     Active Substance: IODINE
  3. FOLIC ACID. [Concomitant]
     Active Substance: FOLIC ACID
  4. DUPHASTON [Concomitant]
     Active Substance: DYDROGESTERONE
  5. MAGNESIUM [Concomitant]
     Active Substance: MAGNESIUM
  6. ENOXAPARIN [Concomitant]
     Active Substance: ENOXAPARIN
  7. NOVOTHYROX [Suspect]
     Active Substance: LEVOTHYROXINE SODIUM
     Indication: HYPOTHYROIDISM
  8. EUTHYROX [Suspect]
     Active Substance: LEVOTHYROXINE SODIUM
  9. VITAMINS (KAPSOVIT) [Concomitant]
     Active Substance: VITAMINS
  10. PROGESTERONE. [Concomitant]
     Active Substance: PROGESTERONE

REACTIONS (8)
  - Red blood cell sedimentation rate increased [Recovered/Resolved]
  - Hepatomegaly [Recovered/Resolved]
  - Lymphocyte count decreased [Recovered/Resolved]
  - Rhesus incompatibility [Recovered/Resolved]
  - Eosinophil count decreased [Recovered/Resolved]
  - Maternal exposure during pregnancy [Recovered/Resolved]
  - Rhinorrhoea [Not Recovered/Not Resolved]
  - Neutrophil count increased [Recovered/Resolved]
